FAERS Safety Report 11004224 (Version 2)
Quarter: 2015Q2

REPORT INFORMATION
  Report Type: Spontaneous
  Country: SE (occurrence: SE)
  Receive Date: 20150409
  Receipt Date: 20150501
  Transmission Date: 20150821
  Serious: Yes (Other)
  Sender: FDA-Public Use
  Company Number: SE-009507513-1504SWE001114

PATIENT
  Age: 42 Year
  Sex: Female

DRUGS (3)
  1. NEXPLANON [Suspect]
     Active Substance: ETONOGESTREL
     Indication: CONTRACEPTION
     Dosage: UNK, IN LEFT ARM
     Route: 059
     Dates: start: 2005
  2. NEXPLANON [Suspect]
     Active Substance: ETONOGESTREL
     Dosage: UNK, IN RIGHT ARM
     Dates: start: 20150330
  3. NEXPLANON [Suspect]
     Active Substance: ETONOGESTREL
     Dosage: UNK, IN RIGHT ARM
     Route: 059
     Dates: start: 201008, end: 20150330

REACTIONS (12)
  - Medical device complication [Not Recovered/Not Resolved]
  - Scar [Unknown]
  - Medical device complication [Not Recovered/Not Resolved]
  - Incorrect drug administration duration [Unknown]
  - Device difficult to use [Recovered/Resolved]
  - Device deployment issue [Not Recovered/Not Resolved]
  - Gastric bypass [Unknown]
  - Weight decreased [Unknown]
  - Device difficult to use [Unknown]
  - Device difficult to use [Not Recovered/Not Resolved]
  - Plastic surgery [Unknown]
  - Overdose [Unknown]

NARRATIVE: CASE EVENT DATE: 2008
